FAERS Safety Report 4428985-8 (Version None)
Quarter: 2004Q3

REPORT INFORMATION
  Report Type: 
  Country: None (occurrence: None)
  Receive Date: 20040818
  Receipt Date: 20040812
  Transmission Date: 20050211
  Serious: Yes (Hospitalization)
  Sender: FDA-Public Use
  Company Number: PHEH2004US08743

PATIENT
  Age: 86 Year
  Sex: Female

DRUGS (2)
  1. MIACALCIN [Suspect]
     Indication: OSTEOPOROSIS
     Dosage: 200 IU, QD
     Route: 045
     Dates: start: 19990101
  2. INHALATION THERAPY [Concomitant]

REACTIONS (5)
  - ANKLE FRACTURE [None]
  - BALANCE DISORDER [None]
  - DRUG INEFFECTIVE [None]
  - SURGERY [None]
  - WALKING AID USER [None]
